FAERS Safety Report 8537334-5 (Version None)
Quarter: 2012Q3

REPORT INFORMATION
  Report Type: 
  Country: None (occurrence: None)
  Receive Date: 20120725
  Receipt Date: 20120713
  Transmission Date: 20120928
  Serious: Yes (Hospitalization, Other)
  Sender: FDA-Public Use
  Company Number: FR-BRISTOL-MYERS SQUIBB COMPANY-16774374

PATIENT
  Age: 81 Year
  Sex: Male

DRUGS (9)
  1. CRESTOR [Concomitant]
     Indication: HYPERLIPIDAEMIA
     Route: 048
  2. CIPROFLOXACIN HYDROCHLORIDE [Interacting]
     Indication: LUNG DISORDER
     Route: 048
     Dates: start: 20120605, end: 20120606
  3. AUGMENTIN '500' [Interacting]
     Indication: LUNG DISORDER
     Route: 048
     Dates: start: 20120605, end: 20120606
  4. LASIX [Concomitant]
     Indication: HYPERTENSION
     Route: 048
  5. COUMADIN [Suspect]
     Route: 048
     Dates: start: 20040101
  6. ANDROCUR [Concomitant]
     Indication: NEOPLASM
     Route: 048
  7. AMOXICILLIN [Interacting]
     Indication: LUNG DISORDER
     Route: 048
     Dates: start: 20120601, end: 20120605
  8. NITROGLYCERIN [Concomitant]
     Indication: ANGINA PECTORIS
     Route: 062
  9. CANDESARTAN CILEXETIL [Concomitant]
     Indication: HYPERTENSION

REACTIONS (9)
  - HAEMOTHORAX [None]
  - BRONCHOPULMONARY DISEASE [None]
  - DRUG INTERACTION [None]
  - CEREBRAL INFARCTION [None]
  - SLEEP APNOEA SYNDROME [None]
  - HAEMATURIA [None]
  - INTERNATIONAL NORMALISED RATIO INCREASED [None]
  - CARDIAC FAILURE [None]
  - OVERDOSE [None]
